FAERS Safety Report 7800944-4 (Version None)
Quarter: 2011Q4

REPORT INFORMATION
  Report Type: 
  Country: None (occurrence: None)
  Receive Date: 20111006
  Receipt Date: 20110425
  Transmission Date: 20120403
  Serious: No
  Sender: FDA-Public Use
  Company Number: US-BAYER-2011-035854

PATIENT
  Age: 64 Year
  Sex: Male

DRUGS (7)
  1. PROGRAF [Concomitant]
  2. DIURETICS [Concomitant]
  3. MULTI-VITAMINS [Concomitant]
  4. CIPROFLOXACIN [Suspect]
     Dosage: UNK
     Route: 048
     Dates: start: 20091201
  5. ANTIDEPRESSANTS [Concomitant]
  6. WARFARIN SODIUM [Concomitant]
  7. ANTACIDS [Concomitant]

REACTIONS (2)
  - JOINT SWELLING [None]
  - ARTHRALGIA [None]
